FAERS Safety Report 14176097 (Version 3)
Quarter: 2018Q1

REPORT INFORMATION
  Report Type: Spontaneous
  Country: DK (occurrence: DK)
  Receive Date: 20171109
  Receipt Date: 20180306
  Transmission Date: 20180508
  Serious: Yes (Hospitalization, Other)
  Sender: FDA-Public Use
  Company Number: DK-PFIZER INC-2017482407

PATIENT
  Age: 38 Year
  Sex: Female
  Weight: 98.4 kg

DRUGS (6)
  1. IBRANCE [Suspect]
     Active Substance: PALBOCICLIB
     Indication: BREAST CANCER METASTATIC
     Dosage: DOSE: STRENGTH:125 MG DAILY IN 3 WEEKS. HEREAFTER PAUSE 1 WEEK
     Route: 048
     Dates: start: 20171002, end: 20171022
  2. ABILIFY MAINTENA [Suspect]
     Active Substance: ARIPIPRAZOLE
     Indication: SCHIZOPHRENIA
     Dosage: 400 MG, EVERY 28 DAYS
     Route: 030
     Dates: start: 20131001
  3. EPIRUBICIN ACTAVIS [Suspect]
     Active Substance: EPIRUBICIN
     Indication: BREAST CANCER METASTATIC
     Dosage: 180 MG, EVERY 3 WEEKS
     Route: 042
     Dates: start: 20170401, end: 20170606
  4. ZOLADEX [Concomitant]
     Active Substance: GOSERELIN ACETATE
     Indication: HORMONE SUPPRESSION THERAPY
     Dosage: 3.6 MG, EVERY 4 WEEKS
     Route: 058
     Dates: start: 20170807
  5. ZOLEDRONSYRE HOSPIRA [Concomitant]
     Active Substance: ZOLEDRONIC ACID
     Indication: METASTASES TO BONE
     Dosage: 4 MG. EVERY DAY AS NEEDED. STRENGTH: 4 MG / 100 ML
     Route: 042
     Dates: start: 20170515
  6. LETROZOL ORION [Concomitant]
     Indication: BREAST CANCER METASTATIC
     Dosage: 2.5 MG, 1X/DAY
     Route: 048
     Dates: start: 20170807

REACTIONS (2)
  - Cardiac failure [Not Recovered/Not Resolved]
  - Dyspnoea [Unknown]

NARRATIVE: CASE EVENT DATE: 20171022
